FAERS Safety Report 4555871-5 (Version None)
Quarter: 2005Q1

REPORT INFORMATION
  Report Type: 
  Country: None (occurrence: None)
  Receive Date: 20050111
  Receipt Date: 20041122
  Transmission Date: 20050727
  Serious: No
  Sender: FDA-Public Use
  Company Number: 2004S1000271

PATIENT
  Sex: Male
  Weight: 105.45 kg

DRUGS (2)
  1. CUBICIN [Suspect]
     Indication: STAPHYLOCOCCAL INFECTION
     Dosage: 850 MG;Q24H;IV
     Route: 042
     Dates: start: 20040101, end: 20040101
  2. CUBICIN [Suspect]
     Indication: STAPHYLOCOCCAL INFECTION
     Dosage: 425 MG;Q24H;IV
     Route: 042
     Dates: start: 20040101, end: 20040101

REACTIONS (5)
  - DYSGEUSIA [None]
  - FLUSHING [None]
  - HYPERSENSITIVITY [None]
  - SYNCOPE [None]
  - VERTIGO [None]
